FAERS Safety Report 9870291 (Version 3)
Quarter: 2014Q1

REPORT INFORMATION
  Report Type: Report from Study
  Country: US (occurrence: US)
  Receive Date: 20140205
  Receipt Date: 20140214
  Transmission Date: 20141002
  Serious: Yes (Death)
  Sender: FDA-Public Use
  Company Number: US-ACTELION-A-NJ2013-92183

PATIENT
  Age: 45 Year
  Sex: Female

DRUGS (6)
  1. TRACLEER [Suspect]
     Indication: PULMONARY HYPERTENSION
     Dosage: UNK
     Route: 048
     Dates: start: 20120413, end: 20140115
  2. SILDENAFIL [Concomitant]
  3. COUMADIN [Concomitant]
  4. IMURAN [Concomitant]
  5. METHOTREXATE [Concomitant]
  6. REMICADE [Concomitant]

REACTIONS (5)
  - Interstitial lung disease [Fatal]
  - Disease progression [Not Recovered/Not Resolved]
  - Respiratory disorder [Not Recovered/Not Resolved]
  - Pulmonary function test abnormal [Not Recovered/Not Resolved]
  - Dyspnoea [Not Recovered/Not Resolved]
